FAERS Safety Report 14798230 (Version 2)
Quarter: 2018Q2

REPORT INFORMATION
  Report Type: Spontaneous
  Country: FR (occurrence: FR)
  Receive Date: 20180424
  Receipt Date: 20180502
  Transmission Date: 20180711
  Serious: Yes (Other)
  Sender: FDA-Public Use
  Company Number: FR-AMGEN-FRASP2018052474

PATIENT
  Age: 82 Year
  Sex: Female

DRUGS (1)
  1. MIMPARA [Suspect]
     Active Substance: CINACALCET HYDROCHLORIDE
     Indication: PRIMARY HYPERTHYROIDISM
     Dosage: 2 DF(30 MG)
     Route: 065

REACTIONS (2)
  - Muscle spasms [Recovered/Resolved]
  - Surgery [Unknown]
